FAERS Safety Report 17372767 (Version 1)
Quarter: 2020Q1

REPORT INFORMATION
  Report Type: Report from Study
  Country: None (occurrence: US)
  Receive Date: 20200205
  Receipt Date: 20200205
  Transmission Date: 20200409
  Serious: Yes (Hospitalization)
  Sender: FDA-Public Use
  Company Number: US-ABBVIE-20K-163-3263660-00

PATIENT
  Sex: Female

DRUGS (2)
  1. HUMIRA [Suspect]
     Active Substance: ADALIMUMAB
     Indication: COLITIS ULCERATIVE
     Dosage: DAY 0
     Route: 058
     Dates: start: 20191216, end: 20191216
  2. HUMIRA [Suspect]
     Active Substance: ADALIMUMAB
     Dosage: DAY 15
     Route: 058
     Dates: start: 20191230, end: 20191230

REACTIONS (5)
  - Clostridium difficile infection [Unknown]
  - Escherichia infection [Unknown]
  - Deep vein thrombosis [Unknown]
  - Central venous catheterisation [Unknown]
  - Weight decreased [Unknown]
